FAERS Safety Report 10027534 (Version 4)
Quarter: 2014Q2

REPORT INFORMATION
  Report Type: Spontaneous
  Country: US (occurrence: US)
  Receive Date: 20140321
  Receipt Date: 20140408
  Transmission Date: 20141212
  Serious: No
  Sender: FDA-Public Use
  Company Number: US-PFIZER INC-2013148619

PATIENT
  Age: 48 Year
  Sex: Male

DRUGS (12)
  1. LYRICA [Suspect]
     Dosage: 75 MG, 2X/DAY
  2. ELAVIL [Concomitant]
  3. DICLOFENAC [Concomitant]
  4. NORCO [Concomitant]
     Dosage: 10 HYDROCODONE BITARTRATE /325 PARACETAMOL, ONE EVERY 6 HOURS , PRN
  5. METHOTREXATE [Concomitant]
  6. FLEXERIL [Concomitant]
  7. TRAZODONE [Concomitant]
     Dosage: 150 MG, 1X/DAY
  8. AMBIEN [Concomitant]
     Dosage: 10 MG, 1X/DAY
  9. CELEBREX [Concomitant]
     Dosage: 200 MG, DAILY
  10. AMITRIPTYLINE [Concomitant]
     Dosage: 50 MG, 1X/DAY
  11. CARISOPRODOL [Concomitant]
     Dosage: 350 MG, 1X/DAY
  12. MORPHINE SULFATE EXTENDED RELEASE [Concomitant]
     Dosage: 30 MG, 2X/DAY

REACTIONS (1)
  - Malaise [Unknown]
